FAERS Safety Report 23691701 (Version 1)
Quarter: 2024Q1

REPORT INFORMATION
  Report Type: Spontaneous
  Country: US (occurrence: None)
  Receive Date: 20240329
  Receipt Date: 20240329
  Transmission Date: 20240410
  Serious: Yes (Hospitalization)
  Sender: FDA-Public Use
  Company Number: None

PATIENT
  Age: 54 Year
  Sex: Male

DRUGS (15)
  1. AMBRISENTAN [Suspect]
     Active Substance: AMBRISENTAN
     Indication: Pulmonary arterial hypertension
     Dosage: 5MG QD ORAL
     Route: 048
     Dates: start: 20171107
  2. METHAMPHETAMINE [Suspect]
     Active Substance: METHAMPHETAMINE
  3. CHLOROTHIAZIDE [Concomitant]
  4. TORSEMIDE [Concomitant]
  5. ALBUTEROL HFA [Concomitant]
  6. GABAPENTIN [Concomitant]
     Active Substance: GABAPENTIN
  7. BIKTARVY [Concomitant]
  8. BUPROPION [Concomitant]
  9. METFORMIN [Concomitant]
  10. STIOLTO RESPIMAT [Concomitant]
  11. SPIRONOLACTONE [Concomitant]
  12. FAMOTIDINE [Concomitant]
  13. ATORVASTATIN [Concomitant]
  14. IBUPROFEN [Concomitant]
  15. TADALAFIL [Concomitant]

REACTIONS (10)
  - Right ventricular failure [None]
  - Therapeutic product effect decreased [None]
  - Dyspnoea exertional [None]
  - Orthopnoea [None]
  - Oedema peripheral [None]
  - Weight increased [None]
  - Refusal of treatment by patient [None]
  - Respiratory failure [None]
  - Cardiac failure congestive [None]
  - Treatment noncompliance [None]

NARRATIVE: CASE EVENT DATE: 20240322
